FAERS Safety Report 6738253-7 (Version None)
Quarter: 2010Q2

REPORT INFORMATION
  Report Type: 
  Country: None (occurrence: None)
  Receive Date: 20100524
  Receipt Date: 20100513
  Transmission Date: 20101027
  Serious: Yes (Other)
  Sender: FDA-Public Use
  Company Number: A0833478A

PATIENT
  Sex: Male
  Weight: 65.9 kg

DRUGS (1)
  1. AVANDIA [Suspect]
     Indication: DIABETES MELLITUS
     Route: 048
     Dates: start: 20020220, end: 20090101

REACTIONS (3)
  - CARDIAC DISORDER [None]
  - INJURY [None]
  - THROMBOSIS [None]
